FAERS Safety Report 6550568-4 (Version None)
Quarter: 2010Q1

REPORT INFORMATION
  Report Type: 
  Country: None (occurrence: None)
  Receive Date: 20100125
  Receipt Date: 20100114
  Transmission Date: 20100710
  Serious: Yes (Hospitalization)
  Sender: FDA-Public Use
  Company Number: DE-ELI_LILLY_AND_COMPANY-DE201001002908

PATIENT
  Sex: Male
  Weight: 117 kg

DRUGS (10)
  1. BYETTA [Suspect]
     Indication: DIABETES MELLITUS
     Dosage: 10 UG, 2/D
     Route: 058
     Dates: start: 20080601, end: 20100113
  2. PLAVIX [Concomitant]
     Dosage: UNK, UNKNOWN
     Route: 065
  3. DELIX PLUS [Concomitant]
     Dosage: UNK, UNKNOWN
     Route: 065
  4. ACETYLSALICYLIC ACID [Concomitant]
     Dosage: UNK, UNKNOWN
     Route: 065
  5. FUROSEMID [Concomitant]
     Dosage: UNK, UNKNOWN
     Route: 065
  6. INEGY [Concomitant]
     Dosage: UNK, UNKNOWN
     Route: 065
  7. PANTOPRAZOLE [Concomitant]
     Dosage: UNK, UNKNOWN
     Route: 065
  8. AMLODIPINE [Concomitant]
     Dosage: UNK, UNKNOWN
     Route: 065
  9. VIANI [Concomitant]
     Dosage: UNK, UNKNOWN
     Route: 065
  10. METFORMIN [Concomitant]
     Dosage: UNK, UNKNOWN
     Route: 065

REACTIONS (1)
  - PANCREATITIS ACUTE [None]
